FAERS Safety Report 15182656 (Version 1)
Quarter: 2018Q3

REPORT INFORMATION
  Report Type: Spontaneous
  Country: US (occurrence: US)
  Receive Date: 20180624
  Receipt Date: 20180624
  Transmission Date: 20181010
  Serious: Yes (Other)
  Sender: FDA-Public Use
  Company Number: None

PATIENT
  Age: 73 Year
  Sex: Male
  Weight: 121.5 kg

DRUGS (15)
  1. VICTOZA [Suspect]
     Active Substance: LIRAGLUTIDE
     Indication: DIABETES MELLITUS MANAGEMENT
     Dosage: ?          QUANTITY:1 INJECTION(S);OTHER ROUTE:INJECT INTO SOFT TISSUE?
     Dates: start: 20180601, end: 20180611
  2. SOTOLOL [Concomitant]
     Active Substance: SOTALOL
  3. TERASOSIN [Concomitant]
  4. PRAGUE [Concomitant]
  5. ISOSORBIDE MONONITRATE. [Concomitant]
     Active Substance: ISOSORBIDE MONONITRATE
  6. PANTAPRAZOLE [Concomitant]
     Active Substance: PANTOPRAZOLE SODIUM
  7. LYRICS [Concomitant]
  8. COW [Concomitant]
  9. PLAVIX [Concomitant]
     Active Substance: CLOPIDOGREL BISULFATE
  10. FISH OIL [Concomitant]
     Active Substance: FISH OIL
  11. MULTIPLE VITAMINS [Concomitant]
     Active Substance: VITAMINS
  12. ELIQUIS [Concomitant]
     Active Substance: APIXABAN
  13. HYDROCHLOROTHIAZIDE. [Concomitant]
     Active Substance: HYDROCHLOROTHIAZIDE
  14. LOSARTIN [Concomitant]
     Active Substance: LOSARTAN
  15. GLIPIZIDE. [Concomitant]
     Active Substance: GLIPIZIDE

REACTIONS (2)
  - Abdominal pain upper [None]
  - Malaise [None]

NARRATIVE: CASE EVENT DATE: 20180601
